FAERS Safety Report 9163509 (Version 4)
Quarter: 2013Q3

REPORT INFORMATION
  Report Type: Spontaneous
  Country: US (occurrence: US)
  Receive Date: 20130314
  Receipt Date: 20130722
  Transmission Date: 20140515
  Serious: No
  Sender: FDA-Public Use
  Company Number: US-PFIZER INC-2013082103

PATIENT
  Age: 53 Year
  Sex: Male
  Weight: 99.77 kg

DRUGS (8)
  1. ADVIL [Suspect]
     Indication: BACK PAIN
     Dosage: 3 CAPSULES, ONLY TOOK 1 DOSE
     Route: 048
     Dates: start: 20130226, end: 20130226
  2. ADVIL [Suspect]
     Indication: PAIN IN JAW
  3. PROTONIX [Concomitant]
     Indication: GASTROOESOPHAGEAL REFLUX DISEASE
     Dosage: 40 MG, DAILY
  4. VERPAMIL [Concomitant]
     Indication: MITRAL VALVE PROLAPSE
     Dosage: 20 MG, UNK
     Dates: start: 1986
  5. VIIBRYD [Concomitant]
     Indication: DEPRESSION
     Dosage: 40 MG, UNK
     Dates: start: 2012
  6. VYTORIN [Concomitant]
     Indication: BLOOD CHOLESTEROL INCREASED
     Dosage: 10 MG, UNK
  7. REQUIP [Concomitant]
     Indication: RESTLESS LEGS SYNDROME
     Dosage: 1.0 MG, UNK
  8. KLONOPIN [Concomitant]
     Indication: ANXIETY
     Dosage: 1 MG, UNK

REACTIONS (8)
  - Dysgeusia [Recovered/Resolved]
  - Paraesthesia oral [Recovered/Resolved]
  - Drooling [Recovered/Resolved]
  - Dizziness [Recovered/Resolved]
  - Flushing [Recovered/Resolved]
  - Heart rate increased [Recovered/Resolved]
  - Blood pressure increased [Recovered/Resolved]
  - Product quality issue [Recovered/Resolved]
